FAERS Safety Report 6024858-8 (Version None)
Quarter: 2008Q4

REPORT INFORMATION
  Report Type: 
  Country: None (occurrence: None)
  Receive Date: 20081229
  Receipt Date: 20081215
  Transmission Date: 20090506
  Serious: Yes (Other)
  Sender: FDA-Public Use
  Company Number: ACO_00502_2008

PATIENT
  Sex: Male

DRUGS (6)
  1. SIRDALUD - TIZANIDINE HYDROCHLORIDE) (NOT SPECIFIED) [Suspect]
     Indication: MUSCLE DISORDER
     Dosage: 4 MG
     Dates: start: 20080524
  2. METOPROLOL [Concomitant]
  3. CLAMOXYL [Concomitant]
  4. GARAMYCIN [Concomitant]
  5. COMILORIDE [Concomitant]
  6. TOREM [Concomitant]

REACTIONS (8)
  - BRADYCARDIA [None]
  - C-REACTIVE PROTEIN INCREASED [None]
  - COLD SWEAT [None]
  - DIZZINESS [None]
  - HYPERHIDROSIS [None]
  - HYPOTENSION [None]
  - MALAISE [None]
  - PALLOR [None]
